FAERS Safety Report 4588619-9 (Version None)
Quarter: 2005Q1

REPORT INFORMATION
  Report Type: 
  Country: None (occurrence: None)
  Receive Date: 20050214
  Receipt Date: 20050214
  Transmission Date: 20050727
  Serious: Yes (Other)
  Sender: FDA-Public Use
  Company Number: None

PATIENT
  Sex: Female

DRUGS (2)
  1. PLAVIX [Suspect]
     Indication: CORONARY ANGIOPLASTY
     Dosage: 75 MG PO DAILY
     Route: 048
  2. ASPIRIN [Concomitant]

REACTIONS (2)
  - PRURITUS [None]
  - THERAPEUTIC PRODUCT INEFFECTIVE [None]
